FAERS Safety Report 4308346-2 (Version None)
Quarter: 2004Q1

REPORT INFORMATION
  Report Type: 
  Country: None (occurrence: None)
  Receive Date: 20040301
  Receipt Date: 20040203
  Transmission Date: 20041129
  Serious: Yes (Hospitalization, Other)
  Sender: FDA-Public Use
  Company Number: 200410247JP

PATIENT
  Age: 81 Year
  Sex: Female

DRUGS (8)
  1. LASIX [Suspect]
     Indication: OEDEMA
     Route: 048
     Dates: start: 20021228, end: 20030106
  2. AMLODIN [Concomitant]
     Indication: HYPERTENSION
     Route: 048
     Dates: start: 20010825, end: 20030106
  3. ADALAT [Concomitant]
     Indication: HYPERTENSION
     Route: 048
     Dates: start: 20010825, end: 20030106
  4. BERIZYM [Concomitant]
     Indication: GASTRITIS
     Route: 048
     Dates: start: 20010825, end: 20030106
  5. MAGNESIUM OXIDE [Concomitant]
     Indication: CONSTIPATION
     Route: 048
     Dates: start: 20010825, end: 20030106
  6. MARZULENE S [Concomitant]
     Indication: GASTRITIS
     Route: 048
     Dates: start: 20010825, end: 20030106
  7. PURSENNID [Concomitant]
     Indication: CONSTIPATION
     Route: 048
     Dates: start: 20010825, end: 20030106
  8. LIPOVAS ^BANYU^ [Concomitant]
     Indication: HYPERLIPIDAEMIA
     Route: 048
     Dates: start: 20010825, end: 20030106

REACTIONS (18)
  - ABASIA [None]
  - BLOOD CHLORIDE INCREASED [None]
  - BLOOD OSMOLARITY DECREASED [None]
  - BLOOD POTASSIUM DECREASED [None]
  - CONDITION AGGRAVATED [None]
  - DEHYDRATION [None]
  - DEMENTIA ALZHEIMER'S TYPE [None]
  - HYPERNATRAEMIA [None]
  - MALAISE [None]
  - MARKEDLY REDUCED DIETARY INTAKE [None]
  - MEDICATION ERROR [None]
  - OEDEMA PERIPHERAL [None]
  - RENAL FAILURE ACUTE [None]
  - RHABDOMYOLYSIS [None]
  - SOMNOLENCE [None]
  - SPEECH DISORDER [None]
  - THERMAL BURN [None]
  - URINARY TRACT INFECTION [None]
